FAERS Safety Report 18171950 (Version 2)
Quarter: 2020Q4

REPORT INFORMATION
  Report Type: Spontaneous
  Country: AU (occurrence: AU)
  Receive Date: 20200820
  Receipt Date: 20201001
  Transmission Date: 20210113
  Serious: Yes (Other)
  Sender: FDA-Public Use
  Company Number: AU-AMGEN-AUSSP2020134327

PATIENT
  Sex: Female

DRUGS (2)
  1. AIMOVIG [Suspect]
     Active Substance: ERENUMAB-AOOE
     Dosage: UNK
     Route: 065
     Dates: start: 202001
  2. AIMOVIG [Suspect]
     Active Substance: ERENUMAB-AOOE
     Indication: PRODUCT USED FOR UNKNOWN INDICATION
     Dosage: 70 MG, QMO
     Route: 065
     Dates: start: 201912

REACTIONS (13)
  - Insomnia [Unknown]
  - Fatigue [Not Recovered/Not Resolved]
  - Impaired gastric emptying [Unknown]
  - Malaise [Unknown]
  - Eating disorder [Unknown]
  - Intestinal dilatation [Unknown]
  - Gastric dilatation [Unknown]
  - Weight decreased [Unknown]
  - Pain [Unknown]
  - Dyspnoea [Unknown]
  - Constipation [Not Recovered/Not Resolved]
  - Feeling abnormal [Recovered/Resolved]
  - Gastrooesophageal reflux disease [Not Recovered/Not Resolved]
